FAERS Safety Report 7343252-0 (Version None)
Quarter: 2011Q1

REPORT INFORMATION
  Report Type: 
  Country: None (occurrence: None)
  Receive Date: 20110310
  Receipt Date: 20110301
  Transmission Date: 20110831
  Serious: Yes (Other)
  Sender: FDA-Public Use
  Company Number: IT-JNJFOC-20110302132

PATIENT
  Age: 71 Year

DRUGS (4)
  1. VINBLASTINE SULFATE [Concomitant]
     Dosage: WEEKLY AND BIWEEKLY
     Route: 065
  2. CAELYX [Suspect]
     Indication: KAPOSI'S SARCOMA
     Route: 042
  3. VINCRISTINE [Suspect]
     Indication: KAPOSI'S SARCOMA
     Route: 065
  4. BLEOMYCIN SULFATE [Suspect]
     Indication: KAPOSI'S SARCOMA
     Route: 065

REACTIONS (1)
  - NEUROTOXICITY [None]
